FAERS Safety Report 21064280 (Version 1)
Quarter: 2022Q3

REPORT INFORMATION
  Report Type: Spontaneous
  Country: AU (occurrence: AU)
  Receive Date: 20220711
  Receipt Date: 20220711
  Transmission Date: 20221027
  Serious: Yes (Other)
  Sender: FDA-Public Use
  Company Number: AU-BAXTER-2022BAX013779

PATIENT
  Sex: Female

DRUGS (14)
  1. DOXORUBICIN [Suspect]
     Active Substance: DOXORUBICIN
     Indication: Breast cancer female
     Dosage: UNK,  FOUR CYCLES OF TC.
     Route: 065
     Dates: end: 202102
  2. CYCLOPHOSPHAMIDE [Suspect]
     Active Substance: CYCLOPHOSPHAMIDE
     Indication: Breast cancer female
     Dosage: FOUR CYCLES OF TC
     Route: 065
  3. DOCETAXEL [Suspect]
     Active Substance: DOCETAXEL
     Indication: Breast cancer female
     Route: 065
  4. DOCETAXEL [Suspect]
     Active Substance: DOCETAXEL
     Indication: Breast cancer metastatic
  5. CARBOPLATIN [Suspect]
     Active Substance: CARBOPLATIN
     Indication: Breast cancer female
     Dosage: UNK
     Route: 065
     Dates: start: 201907, end: 201909
  6. CARBOPLATIN [Suspect]
     Active Substance: CARBOPLATIN
     Indication: Breast cancer metastatic
  7. GEMCITABINE [Suspect]
     Active Substance: GEMCITABINE
     Indication: Breast cancer female
     Route: 065
  8. GEMCITABINE [Suspect]
     Active Substance: GEMCITABINE
     Indication: Breast cancer metastatic
  9. XELODA [Suspect]
     Active Substance: CAPECITABINE
     Indication: Breast cancer female
     Dosage: UNK
     Route: 065
     Dates: start: 201910
  10. XELODA [Suspect]
     Active Substance: CAPECITABINE
     Indication: Breast cancer metastatic
  11. ABRAXANE [Suspect]
     Active Substance: PACLITAXEL
     Indication: Breast cancer female
     Dosage: UNK
     Route: 065
     Dates: start: 202006
  12. ABRAXANE [Suspect]
     Active Substance: PACLITAXEL
     Indication: Breast cancer metastatic
  13. TAMOXIFEN [Suspect]
     Active Substance: TAMOXIFEN
     Indication: Breast cancer female
     Route: 065
  14. TAMOXIFEN [Suspect]
     Active Substance: TAMOXIFEN
     Indication: Breast cancer metastatic

REACTIONS (4)
  - Metastases to bone [Unknown]
  - Disease progression [Not Recovered/Not Resolved]
  - Pericardial effusion [Unknown]
  - Pleural effusion [Unknown]

NARRATIVE: CASE EVENT DATE: 20191001
